FAERS Safety Report 9695947 (Version 1)
Quarter: 2013Q4

REPORT INFORMATION
  Report Type: Spontaneous
  Country: US (occurrence: None)
  Receive Date: 20131118
  Receipt Date: 20131118
  Transmission Date: 20140711
  Serious: Yes (Other)
  Sender: FDA-Public Use
  Company Number: None

PATIENT
  Age: 58 Year
  Sex: Female
  Weight: 74.84 kg

DRUGS (8)
  1. MACROBID [Suspect]
     Indication: URINARY TRACT INFECTION
     Dosage: 100 MG 1 PILL EVERY 12 HOURS ORALLY
     Route: 048
     Dates: start: 20131031, end: 20131101
  2. MULTAQ [Concomitant]
  3. ATENOLOL [Concomitant]
  4. HCTZ [Concomitant]
  5. ASPIRIN [Concomitant]
  6. FISH OIL [Concomitant]
  7. MULTIVITAMIN [Concomitant]
  8. VITAMIN D/CALCIUM [Concomitant]

REACTIONS (8)
  - Tremor [None]
  - Pyrexia [None]
  - Chills [None]
  - Pain [None]
  - Nausea [None]
  - Vomiting [None]
  - Jaundice [None]
  - Aphagia [None]
